FAERS Safety Report 8047637-9 (Version None)
Quarter: 2012Q1

REPORT INFORMATION
  Report Type: 
  Country: None (occurrence: None)
  Receive Date: 20120116
  Receipt Date: 20120110
  Transmission Date: 20120608
  Serious: Yes (Other)
  Sender: FDA-Public Use
  Company Number: JP-GLAXOSMITHKLINE-B0775011A

PATIENT
  Sex: Male

DRUGS (5)
  1. MUCODYNE [Concomitant]
     Route: 048
  2. CLARITHROMYCIN [Concomitant]
     Route: 048
  3. CEFAZOLIN SODIUM [Concomitant]
     Route: 048
  4. RELENZA [Suspect]
     Indication: INFLUENZA
     Route: 055
     Dates: start: 20111221, end: 20111222
  5. MEPTIN [Concomitant]
     Route: 065

REACTIONS (3)
  - NAUSEA [None]
  - RESTLESSNESS [None]
  - AGGRESSION [None]
